FAERS Safety Report 11874573 (Version 8)
Quarter: 2016Q2

REPORT INFORMATION
  Report Type: Spontaneous
  Country: JP (occurrence: JP)
  Receive Date: 20151229
  Receipt Date: 20160420
  Transmission Date: 20160815
  Serious: Yes (Hospitalization)
  Sender: FDA-Public Use
  Company Number: PHJP2015JP023539

PATIENT
  Age: 51 Year
  Sex: Female
  Weight: 65 kg

DRUGS (8)
  1. PANTETHINE SIOE [Suspect]
     Active Substance: PANTETHINE
     Dosage: 100 MG, TID
     Route: 048
     Dates: start: 20151206
  2. DOMPERIDONE [Concomitant]
     Active Substance: DOMPERIDONE
     Indication: PRODUCT USED FOR UNKNOWN INDICATION
     Dosage: 10 MG, BID
     Route: 065
  3. PANTETHINE SIOE [Suspect]
     Active Substance: PANTETHINE
     Indication: CONSTIPATION PROPHYLAXIS
     Dosage: 100 MG, TID
     Route: 048
     Dates: start: 20151028, end: 20151201
  4. TASIGNA [Suspect]
     Active Substance: NILOTINIB
     Indication: CHRONIC MYELOID LEUKAEMIA
     Dosage: 300 MG, BID
     Route: 048
     Dates: start: 20151028, end: 20151201
  5. MEILAX [Concomitant]
     Active Substance: ETHYL LOFLAZEPATE
     Indication: INSOMNIA
     Dosage: 2 MG, QD
     Route: 048
  6. CONSTAN [Concomitant]
     Active Substance: ALPRAZOLAM
     Indication: IRRITABILITY
     Dosage: 0.4 MG, PRN
     Route: 048
  7. SULPIRIDE [Concomitant]
     Active Substance: SULPIRIDE
     Indication: PRODUCT USED FOR UNKNOWN INDICATION
     Dosage: 50 MG, BID
     Route: 065
  8. REBAMIPIDE [Concomitant]
     Active Substance: REBAMIPIDE
     Indication: ABDOMINAL PAIN UPPER
     Dosage: 100 MG, TID
     Route: 048
     Dates: start: 20151028, end: 20151201

REACTIONS (16)
  - Hepatic function abnormal [Recovering/Resolving]
  - Alanine aminotransferase increased [Recovered/Resolved]
  - Aspartate aminotransferase increased [Recovered/Resolved]
  - Pharyngeal erythema [Unknown]
  - Blood creatinine decreased [Unknown]
  - Blood lactate dehydrogenase increased [Unknown]
  - Neutrophil count decreased [Unknown]
  - Cough [Recovering/Resolving]
  - White blood cell count decreased [Unknown]
  - Haemoglobin decreased [Unknown]
  - Blood alkaline phosphatase increased [Unknown]
  - Blood bilirubin increased [Recovered/Resolved]
  - Pyrexia [Recovered/Resolved]
  - Abdominal pain [Recovered/Resolved]
  - C-reactive protein increased [Unknown]
  - Epistaxis [Recovered/Resolved]

NARRATIVE: CASE EVENT DATE: 20150902
